FAERS Safety Report 6530743-5 (Version None)
Quarter: 2010Q1

REPORT INFORMATION
  Report Type: 
  Country: None (occurrence: None)
  Receive Date: 20100108
  Receipt Date: 20090113
  Transmission Date: 20100710
  Serious: No
  Sender: FDA-Public Use
  Company Number: A0763427A

PATIENT
  Age: 46 Year
  Sex: Male

DRUGS (6)
  1. LOVAZA [Suspect]
     Dosage: 2G TWICE PER DAY
     Route: 048
     Dates: start: 20081217, end: 20090106
  2. TRICOR [Concomitant]
  3. NEXIUM [Concomitant]
  4. NIASPAN [Concomitant]
  5. RAMIPRIL [Concomitant]
  6. ZYRTEC [Concomitant]

REACTIONS (1)
  - RASH [None]
